FAERS Safety Report 23710613 (Version 1)
Quarter: 2024Q2

REPORT INFORMATION
  Report Type: Spontaneous
  Country: IN (occurrence: IN)
  Receive Date: 20240405
  Receipt Date: 20240405
  Transmission Date: 20240716
  Serious: Yes (Other)
  Sender: FDA-Public Use
  Company Number: IN-PIRAMAL CRITICAL CARE LIMITED-2024-PPL-000233

PATIENT

DRUGS (4)
  1. SEVOFLURANE [Suspect]
     Active Substance: SEVOFLURANE
     Indication: Induction of anaesthesia
     Dosage: UPTO 8% IN AN OXYGEN AND NITROUS MIXTURE
  2. SEVOFLURANE [Suspect]
     Active Substance: SEVOFLURANE
     Dosage: SEVOFLURANE WAS DECREASED TO 1%, WITH OXYGEN/ NITROUS KEPT AT 1 LITER/MIN AND THE MASK SECURED VIA H
  3. MIDAZOLAM [Concomitant]
     Active Substance: MIDAZOLAM
     Indication: Premedication
     Dosage: 0.5 MILLIGRAM/KILOGRAM
     Route: 048
  4. RINGER LACTATE                     /01126301/ [Concomitant]
     Indication: Product used for unknown indication
     Dosage: 10ML/ KG
     Route: 040

REACTIONS (1)
  - Delayed recovery from anaesthesia [Recovered/Resolved]
